FAERS Safety Report 9741606 (Version 1)
Quarter: 2013Q4

REPORT INFORMATION
  Report Type: Spontaneous
  Country: US (occurrence: US)
  Receive Date: 20131210
  Receipt Date: 20131210
  Transmission Date: 20140711
  Serious: No
  Sender: FDA-Public Use
  Company Number: US-009507513-1312USA002703

PATIENT
  Age: 98 Year
  Sex: Male

DRUGS (3)
  1. VYTORIN [Suspect]
     Indication: BLOOD CHOLESTEROL
     Dosage: 10/20MG/ONCE DAILY
     Route: 048
     Dates: end: 201310
  2. NORVASC [Concomitant]
  3. BENICAR [Concomitant]

REACTIONS (2)
  - Rash [Recovering/Resolving]
  - Myalgia [Recovering/Resolving]
